FAERS Safety Report 19088932 (Version 2)
Quarter: 2021Q2

REPORT INFORMATION
  Report Type: Spontaneous
  Country: US (occurrence: US)
  Receive Date: 20210403
  Receipt Date: 20210410
  Transmission Date: 20210717
  Serious: No
  Sender: FDA-Public Use
  Company Number: US-UNITED THERAPEUTICS-UNT-2021-002894

PATIENT
  Sex: Female
  Weight: 92.06 kg

DRUGS (5)
  1. TYVASO [Suspect]
     Active Substance: TREPROSTINIL
     Dosage: UNK
  2. SILDENAFIL CITRATE. [Concomitant]
     Active Substance: SILDENAFIL CITRATE
     Indication: PRODUCT USED FOR UNKNOWN INDICATION
     Dosage: UNK
     Route: 065
  3. TYVASO [Suspect]
     Active Substance: TREPROSTINIL
     Indication: PULMONARY ARTERIAL HYPERTENSION
     Dosage: UNK
     Dates: start: 20210118
  4. TYVASO [Suspect]
     Active Substance: TREPROSTINIL
     Dosage: 18?54 ?G, QID
  5. TYVASO [Suspect]
     Active Substance: TREPROSTINIL
     Dosage: UNK

REACTIONS (15)
  - Cough [Unknown]
  - Flushing [Unknown]
  - Back pain [Unknown]
  - Lethargy [Unknown]
  - Seasonal allergy [Unknown]
  - Anxiety [Unknown]
  - Throat irritation [Unknown]
  - Fatigue [Unknown]
  - Oxygen saturation decreased [Unknown]
  - Hypoacusis [Unknown]
  - Dyspnoea [Unknown]
  - Dysphonia [Unknown]
  - Dizziness [Unknown]
  - Tremor [Unknown]
  - Blood pressure decreased [Unknown]
